FAERS Safety Report 12534762 (Version 1)
Quarter: 2016Q3

REPORT INFORMATION
  Report Type: Spontaneous
  Country: US (occurrence: None)
  Receive Date: 20160706
  Receipt Date: 20160706
  Transmission Date: 20161109
  Serious: Yes (Congenital Anomaly)
  Sender: FDA-Public Use
  Company Number: None

PATIENT
  Age: 27 Year
  Sex: Female
  Weight: 65.77 kg

DRUGS (1)
  1. ACCUTANE [Suspect]
     Active Substance: ISOTRETINOIN
     Indication: ACNE
     Route: 048
     Dates: start: 20160604, end: 20160605

REACTIONS (3)
  - Drug monitoring procedure incorrectly performed [None]
  - Treatment noncompliance [None]
  - Pregnancy [None]

NARRATIVE: CASE EVENT DATE: 20160604
